FAERS Safety Report 10149337 (Version 1)
Quarter: 2014Q2

REPORT INFORMATION
  Report Type: Report from Study
  Country: CA (occurrence: CA)
  Receive Date: 20140502
  Receipt Date: 20140502
  Transmission Date: 20141212
  Serious: Yes (Other)
  Sender: FDA-Public Use
  Company Number: CA-JNJFOC-20140418733

PATIENT
  Age: 43 Year
  Sex: Female
  Weight: 83.9 kg

DRUGS (9)
  1. REMICADE [Suspect]
     Indication: COLITIS ULCERATIVE
     Dosage: 32ND INFUSION
     Route: 042
     Dates: start: 20140425
  2. REMICADE [Suspect]
     Indication: COLITIS ULCERATIVE
     Route: 042
     Dates: start: 20140328
  3. REMICADE [Suspect]
     Indication: COLITIS ULCERATIVE
     Route: 042
     Dates: start: 20111021
  4. CELEXA [Concomitant]
     Route: 065
  5. FOLIC ACID [Concomitant]
     Route: 065
  6. RANITIDINE [Concomitant]
     Route: 065
  7. VITAMIN D [Concomitant]
     Route: 065
  8. METHOTREXATE [Concomitant]
     Route: 065
  9. ZOPICLONE [Concomitant]
     Route: 065

REACTIONS (2)
  - Gastrooesophageal reflux disease [Recovering/Resolving]
  - Abdominal pain upper [Recovering/Resolving]
